FAERS Safety Report 19922600 (Version 1)
Quarter: 2021Q4

REPORT INFORMATION
  Report Type: Spontaneous
  Country: US (occurrence: US)
  Receive Date: 20211005
  Receipt Date: 20211005
  Transmission Date: 20220303
  Serious: No
  Sender: FDA-Public Use
  Company Number: US-GILEAD-2021-0551157

PATIENT
  Age: 31 Year
  Sex: Female

DRUGS (3)
  1. SOFOSBUVIR\VELPATASVIR [Suspect]
     Active Substance: SOFOSBUVIR\VELPATASVIR
     Indication: Hepatitis C
     Dosage: 1 DOSAGE FORM, QD
     Route: 048
  2. KEPPRA [Concomitant]
     Active Substance: LEVETIRACETAM
  3. ADVIL PM [Concomitant]
     Active Substance: DIPHENHYDRAMINE CITRATE\IBUPROFEN

REACTIONS (1)
  - Intentional dose omission [Unknown]

NARRATIVE: CASE EVENT DATE: 20210928
